FAERS Safety Report 4916433-0 (Version None)
Quarter: 2006Q1

REPORT INFORMATION
  Report Type: 
  Country: None (occurrence: None)
  Receive Date: 20060214
  Receipt Date: 20060203
  Transmission Date: 20060701
  Serious: Yes (Hospitalization, Other)
  Sender: FDA-Public Use
  Company Number: 200210014BCA

PATIENT
  Age: 42 Year
  Sex: Female

DRUGS (10)
  1. AVELOX [Suspect]
     Indication: LUNG INFECTION
     Dosage: 400 MG, TOTAL DAILY, ORAL
     Route: 048
     Dates: start: 20011113, end: 20011122
  2. AVELOX [Suspect]
     Indication: PNEUMONIA
     Dosage: 400 MG, TOTAL DAILY, ORAL
     Route: 048
     Dates: start: 20011113, end: 20011122
  3. VALPROIC ACID [Concomitant]
  4. CLONAZEPAM [Concomitant]
  5. LACTULOSE [Concomitant]
  6. SYNTHROID [Concomitant]
  7. COLACE [Concomitant]
  8. SENOKOT [Concomitant]
  9. ZOLOFT [Concomitant]
  10. LARGACITIL [Concomitant]

REACTIONS (11)
  - ABASIA [None]
  - ALANINE AMINOTRANSFERASE INCREASED [None]
  - ASPARTATE AMINOTRANSFERASE INCREASED [None]
  - ASTHENIA [None]
  - BLOOD CREATINE PHOSPHOKINASE INCREASED [None]
  - DRUG ADMINISTRATION ERROR [None]
  - DRUG TOXICITY [None]
  - HYPOTHERMIA [None]
  - MEDICATION ERROR [None]
  - MYOPATHY [None]
  - NEUTROPHILIA [None]
